FAERS Safety Report 5484334-8 (Version None)
Quarter: 2007Q4

REPORT INFORMATION
  Report Type: 
  Country: None (occurrence: None)
  Receive Date: 20071010
  Receipt Date: 20070926
  Transmission Date: 20080405
  Serious: Yes (Death)
  Sender: FDA-Public Use
  Company Number: 2007US002344

PATIENT
  Age: 38 Year
  Sex: Male

DRUGS (15)
  1. PROGRAF [Suspect]
     Indication: RENAL TRANSPLANT
     Dosage: 3.5 MG, BID, ORAL
     Route: 048
     Dates: start: 20051116, end: 20060327
  2. MYCOPHENOLATE MOFETIL [Suspect]
     Indication: RENAL TRANSPLANT
     Dosage: 1000 MG, BID, ORAL; 500 MG, BID
     Route: 048
     Dates: start: 20051117, end: 20060327
  3. MYCOPHENOLATE MOFETIL [Suspect]
     Indication: RENAL TRANSPLANT
     Dosage: 1000 MG, BID, ORAL; 500 MG, BID
     Route: 048
     Dates: start: 20060206
  4. PREDNISONE TAB [Suspect]
     Indication: RENAL TRANSPLANT
     Dosage: 10 MG, UID/QD, ORAL
     Route: 048
     Dates: start: 20051117, end: 20060327
  5. LANTUS [Concomitant]
  6. VALCYTE [Concomitant]
  7. PROCARDIA [Concomitant]
  8. SEROQUEL [Concomitant]
  9. NOVOLOG [Concomitant]
  10. PROTONIX [Concomitant]
  11. LOPRESSOR [Concomitant]
  12. KLONOPIN [Concomitant]
  13. COLACE (DOCUSATE SODIUM) [Concomitant]
  14. OXYCODONE HCL [Concomitant]
  15. NOVOLIN N [Concomitant]

REACTIONS (1)
  - CARDIAC ARREST [None]
